FAERS Safety Report 4991186-9 (Version None)
Quarter: 2006Q2

REPORT INFORMATION
  Report Type: 
  Country: None (occurrence: None)
  Receive Date: 20060427
  Receipt Date: 20060414
  Transmission Date: 20061013
  Serious: Yes (Other)
  Sender: FDA-Public Use
  Company Number: US017343

PATIENT

DRUGS (2)
  1. TRISENOX [Suspect]
     Dates: end: 20060407
  2. VALACYCLOVIR HCL [Suspect]

REACTIONS (2)
  - DEMENTIA [None]
  - RENAL FAILURE [None]
